FAERS Safety Report 5253399-0 (Version None)
Quarter: 2007Q1

REPORT INFORMATION
  Report Type: 
  Country: None (occurrence: None)
  Receive Date: 20070301
  Receipt Date: 20070217
  Transmission Date: 20070707
  Serious: Yes (Death)
  Sender: FDA-Public Use
  Company Number: CZ-SANOFI-SYNTHELABO-A01200701767

PATIENT
  Sex: Female

DRUGS (1)
  1. ZOLPIDEM TARTRATE [Suspect]
     Indication: DRUG ABUSER
     Dosage: UNK
     Route: 065

REACTIONS (2)
  - DRUG ABUSER [None]
  - MENTAL DISORDER [None]
